FAERS Safety Report 10166659 (Version 1)
Quarter: 2014Q2

REPORT INFORMATION
  Report Type: Spontaneous
  Country: US (occurrence: None)
  Receive Date: 20140509
  Receipt Date: 20140509
  Transmission Date: 20141212
  Serious: No
  Sender: FDA-Public Use
  Company Number: None

PATIENT
  Sex: 0

DRUGS (1)
  1. ISOVUE 370 [Suspect]
     Dates: start: 20140407

REACTIONS (2)
  - Urticaria [None]
  - Pruritus [None]
